FAERS Safety Report 9397180 (Version 6)
Quarter: 2014Q1

REPORT INFORMATION
  Report Type: Report from Study
  Country: CA (occurrence: CA)
  Receive Date: 20130712
  Receipt Date: 20140113
  Transmission Date: 20141002
  Serious: Yes (Hospitalization, Other)
  Sender: FDA-Public Use
  Company Number: PHHY2012CA080763

PATIENT
  Age: 48 Year
  Sex: Male

DRUGS (1)
  1. SANDOSTATIN LAR [Suspect]
     Indication: ACROMEGALY
     Dosage: 20 MG, QMO
     Route: 030
     Dates: start: 20080923

REACTIONS (6)
  - Meningitis [Recovering/Resolving]
  - Convulsion [Unknown]
  - Mental disorder [Unknown]
  - Neoplasm skin [Unknown]
  - Second primary malignancy [Unknown]
  - Blood pressure increased [Unknown]
